FAERS Safety Report 14625772 (Version 1)
Quarter: 2018Q1

REPORT INFORMATION
  Report Type: Spontaneous
  Country: US (occurrence: US)
  Receive Date: 20180312
  Receipt Date: 20180312
  Transmission Date: 20180509
  Serious: No
  Sender: FDA-Public Use
  Company Number: US-BAYER-2018-047641

PATIENT
  Sex: Female

DRUGS (1)
  1. FINACEA [Suspect]
     Active Substance: AZELAIC ACID
     Dosage: UNK
     Dates: start: 2014

REACTIONS (4)
  - Erythema [None]
  - Skin exfoliation [None]
  - Dry skin [None]
  - Skin irritation [None]
